FAERS Safety Report 9215055 (Version 1)
Quarter: 2013Q2

REPORT INFORMATION
  Report Type: Spontaneous
  Country: US (occurrence: US)
  Receive Date: 20130405
  Receipt Date: 20130405
  Transmission Date: 20140414
  Serious: No
  Sender: FDA-Public Use
  Company Number: US-FOUGERA-2012FO001423

PATIENT
  Age: 71 Year
  Sex: Female

DRUGS (2)
  1. FLUOCINONIDE [Suspect]
     Indication: PRURITUS
     Route: 061
     Dates: start: 201210, end: 201211
  2. XANAX [Concomitant]
     Indication: SLEEP DISORDER
     Route: 048
     Dates: start: 201201

REACTIONS (5)
  - Pruritus [Not Recovered/Not Resolved]
  - Condition aggravated [Not Recovered/Not Resolved]
  - Application site irritation [Not Recovered/Not Resolved]
  - Alopecia [Not Recovered/Not Resolved]
  - Fatigue [Unknown]
